FAERS Safety Report 24127370 (Version 1)
Quarter: 2024Q3

REPORT INFORMATION
  Report Type: Report from Study
  Country: US (occurrence: US)
  Receive Date: 20240723
  Receipt Date: 20240723
  Transmission Date: 20241017
  Serious: No
  Sender: VANDA PHARMACEUTICALS
  Company Number: US-VANDA PHARMACEUTICALS, INC-2023TASUS006721

PATIENT
  Age: 2 Year
  Sex: Female
  Weight: 17.324 kg

DRUGS (7)
  1. HETLIOZ LQ [Suspect]
     Active Substance: TASIMELTEON
     Indication: Smith-Magenis syndrome
     Dosage: 2.8 MILLILITER, QD
     Dates: start: 20230417, end: 20230430
  2. HETLIOZ LQ [Suspect]
     Active Substance: TASIMELTEON
     Dosage: 2.8 MILLILITER, QD
     Dates: start: 20230502
  3. HETLIOZ LQ [Suspect]
     Active Substance: TASIMELTEON
     Dosage: 2.8 MILLILITER, QHS
     Route: 048
  4. VITAMIN D3 [Concomitant]
     Active Substance: CHOLECALCIFEROL
     Indication: Product used for unknown indication
     Dosage: UNK
  5. ZINC [Concomitant]
     Active Substance: ZINC
     Indication: Product used for unknown indication
     Dosage: UNK
  6. MAGNESIUM [Concomitant]
     Active Substance: MAGNESIUM
     Indication: Product used for unknown indication
     Dosage: UNK
  7. CALCIUM [Concomitant]
     Active Substance: CALCIUM
     Indication: Product used for unknown indication
     Dosage: UNK

REACTIONS (4)
  - Middle insomnia [Not Recovered/Not Resolved]
  - Terminal insomnia [Unknown]
  - Product dose omission issue [Unknown]
  - Drug ineffective [Unknown]

NARRATIVE: CASE EVENT DATE: 20200330
